FAERS Safety Report 19062243 (Version 1)
Quarter: 2021Q1

REPORT INFORMATION
  Report Type: Spontaneous
  Country: US (occurrence: US)
  Receive Date: 20210326
  Receipt Date: 20210326
  Transmission Date: 20210420
  Serious: Yes (Other)
  Sender: FDA-Public Use
  Company Number: US-BAYER-2021-110608

PATIENT
  Sex: Female

DRUGS (4)
  1. ALEVE [Concomitant]
     Active Substance: NAPROXEN SODIUM
     Indication: PAIN
     Route: 048
  2. LASIX [Concomitant]
     Active Substance: FUROSEMIDE
  3. ALEVE BACK AND MUSCLE PAIN [Concomitant]
     Active Substance: NAPROXEN SODIUM
     Indication: PAIN
     Dosage: 1 DF
     Route: 048
  4. ASPIRIN (CARDIO) [Suspect]
     Active Substance: ASPIRIN

REACTIONS (3)
  - Gastric haemorrhage [None]
  - Haemoptysis [None]
  - Peripheral swelling [None]

NARRATIVE: CASE EVENT DATE: 2020
